FAERS Safety Report 25537740 (Version 2)
Quarter: 2025Q4

REPORT INFORMATION
  Report Type: Report from Study
  Country: US (occurrence: US)
  Receive Date: 20250710
  Receipt Date: 20251002
  Transmission Date: 20260117
  Serious: Yes (Other)
  Sender: ABBVIE
  Company Number: US-ABBVIE-6315330

PATIENT
  Sex: Male

DRUGS (1)
  1. SKYRIZI [Suspect]
     Active Substance: RISANKIZUMAB-RZAA
     Indication: Crohn^s disease
     Route: 058
     Dates: start: 20240912

REACTIONS (5)
  - Enteritis infectious [Not Recovered/Not Resolved]
  - Abdominal pain [Not Recovered/Not Resolved]
  - Therapeutic product effect delayed [Unknown]
  - Frequent bowel movements [Unknown]
  - Abnormal faeces [Unknown]
